FAERS Safety Report 8147384 (Version 3)
Quarter: 2012Q4

REPORT INFORMATION
  Report Type: 
  Country: US (occurrence: US)
  Receive Date: 20110922
  Receipt Date: 20120919
  Transmission Date: 20130627
  Serious: No
  Sender: FDA-Public Use
  Company Number: US-ASTRAZENECA-2010SE58367

PATIENT
  Age: 38 Year
  Sex: Male
  Weight: 99.8 kg

DRUGS (7)
  1. SEROQUEL [Suspect]
     Indication: BIPOLAR DISORDER
     Dosage: 2 DOSES FORM  AT NIGHT
     Route: 048
     Dates: start: 201010
  2. SEROQUEL [Suspect]
     Indication: INSOMNIA
     Dosage: 2 DOSES FORM  AT NIGHT
     Route: 048
     Dates: start: 201010
  3. SEROQUEL [Suspect]
     Indication: BIPOLAR DISORDER
     Route: 048
     Dates: end: 201012
  4. SEROQUEL [Suspect]
     Indication: INSOMNIA
     Route: 048
     Dates: end: 201012
  5. SEROQUEL [Suspect]
     Indication: BIPOLAR DISORDER
     Route: 048
  6. SEROQUEL [Suspect]
     Indication: INSOMNIA
     Route: 048
  7. LITHIUM [Concomitant]
     Indication: BIPOLAR DISORDER

REACTIONS (4)
  - Insomnia [Not Recovered/Not Resolved]
  - Abdominal pain upper [Recovered/Resolved]
  - Drug dose omission [Unknown]
  - Intentional drug misuse [Unknown]
